FAERS Safety Report 9001621 (Version 1)
Quarter: 2013Q1

REPORT INFORMATION
  Report Type: Spontaneous
  Country: US (occurrence: US)
  Receive Date: 20130107
  Receipt Date: 20130107
  Transmission Date: 20140127
  Serious: No
  Sender: FDA-Public Use
  Company Number: US-B.I. PHARMACEUTICALS,INC./RIDGEFIELD-2012-BI-03941BP

PATIENT
  Sex: Female

DRUGS (1)
  1. SPIRIVA [Suspect]
     Indication: OBSTRUCTIVE AIRWAYS DISORDER
     Dosage: 18 MCG
     Route: 055
     Dates: start: 2007

REACTIONS (2)
  - Wrong technique in drug usage process [Recovered/Resolved]
  - Dyspnoea [Not Recovered/Not Resolved]
